FAERS Safety Report 23180977 (Version 2)
Quarter: 2024Q1

REPORT INFORMATION
  Report Type: Spontaneous
  Country: CA (occurrence: CA)
  Receive Date: 20231114
  Receipt Date: 20240109
  Transmission Date: 20240410
  Serious: Yes (Other)
  Sender: FDA-Public Use
  Company Number: CA-PFIZER INC-202300361451

PATIENT
  Age: 56 Year
  Sex: Male

DRUGS (2)
  1. ABRILADA [Suspect]
     Active Substance: ADALIMUMAB-AFZB
     Indication: Crohn^s disease
     Dosage: 40 MG, WEEKLY
     Route: 058
     Dates: start: 20220611, end: 2022
  2. ABRILADA [Suspect]
     Active Substance: ADALIMUMAB-AFZB
     Dosage: 1 DF,REINDUCTION: 160MG AT WEEK 0, 80MG WEEK 2, 40MG WEEK 3, THEN 40MG EVERY WEEK
     Route: 058
     Dates: start: 2022

REACTIONS (1)
  - Rheumatoid arthritis [Recovering/Resolving]
